FAERS Safety Report 24036385 (Version 3)
Quarter: 2024Q3

REPORT INFORMATION
  Report Type: Spontaneous
  Country: DE (occurrence: DE)
  Receive Date: 20240701
  Receipt Date: 20240705
  Transmission Date: 20241016
  Serious: Yes (Death, Other)
  Sender: NOVARTIS
  Company Number: DE-002147023-NVSC2024DE135344

PATIENT
  Age: 80 Year
  Sex: Male
  Weight: 74 kg

DRUGS (1)
  1. PLUVICTO [Suspect]
     Active Substance: LUTETIUM LU-177 VIPIVOTIDE TETRAXETAN
     Indication: Prostate cancer metastatic
     Dosage: 7.400 MBQ
     Route: 065
     Dates: start: 20240305, end: 20240417

REACTIONS (4)
  - Acute kidney injury [Fatal]
  - Prostate cancer metastatic [Fatal]
  - Malignant neoplasm progression [Fatal]
  - Paraplegia [Fatal]

NARRATIVE: CASE EVENT DATE: 20240101
